FAERS Safety Report 15943495 (Version 8)
Quarter: 2022Q2

REPORT INFORMATION
  Report Type: Spontaneous
  Country: US (occurrence: US)
  Receive Date: 20190210
  Receipt Date: 20220523
  Transmission Date: 20220720
  Serious: Yes (Death, Hospitalization, Other)
  Sender: FDA-Public Use
  Company Number: PHEH2019US005572

PATIENT
  Age: 11 Year
  Sex: Male
  Weight: 52 kg

DRUGS (1)
  1. KYMRIAH [Suspect]
     Active Substance: TISAGENLECLEUCEL
     Indication: Acute lymphocytic leukaemia recurrent
     Dosage: 1.7 X10E6 POSITIVE VIABLE T CELLS/KG
     Route: 042
     Dates: start: 20181206

REACTIONS (12)
  - Stenotrophomonas sepsis [Fatal]
  - Multiple organ dysfunction syndrome [Fatal]
  - Neutropenia [Fatal]
  - Pneumonia [Fatal]
  - Respiratory distress [Not Recovered/Not Resolved]
  - Cytokine release syndrome [Recovered/Resolved with Sequelae]
  - Pyrexia [Unknown]
  - Hypotension [Unknown]
  - Bell^s palsy [Unknown]
  - Pulmonary haemorrhage [Unknown]
  - Metabolic acidosis [Unknown]
  - Coagulopathy [Unknown]

NARRATIVE: CASE EVENT DATE: 20181207
